FAERS Safety Report 7028309-6 (Version None)
Quarter: 2010Q4

REPORT INFORMATION
  Report Type: 
  Country: None (occurrence: None)
  Receive Date: 20101005
  Receipt Date: 20100922
  Transmission Date: 20110411
  Serious: Yes (Other)
  Sender: FDA-Public Use
  Company Number: US-ROCHE-714525

PATIENT
  Sex: Male
  Weight: 88.5 kg

DRUGS (3)
  1. ACCUTANE [Suspect]
     Indication: ACNE
     Route: 065
     Dates: start: 20030128, end: 20030801
  2. ACCUTANE [Suspect]
     Route: 065
     Dates: start: 20051222, end: 20060703
  3. KENALOG [Concomitant]
     Indication: ACNE
     Route: 026
     Dates: start: 20020521

REACTIONS (6)
  - BLOOD GLUCOSE DECREASED [None]
  - COLITIS ULCERATIVE [None]
  - INFLAMMATORY BOWEL DISEASE [None]
  - LIP DRY [None]
  - NASAL DRYNESS [None]
  - STRESS [None]
